FAERS Safety Report 5624554-2 (Version None)
Quarter: 2008Q1

REPORT INFORMATION
  Report Type: 
  Country: None (occurrence: None)
  Receive Date: 20080208
  Receipt Date: 20080125
  Transmission Date: 20080703
  Serious: Yes (Death)
  Sender: FDA-Public Use
  Company Number: US022470

PATIENT
  Age: 38 Year
  Sex: Female

DRUGS (5)
  1. FENTANYL [Suspect]
     Dosage: ORAL
     Route: 048
  2. PROMETHAZINE [Suspect]
  3. METAXALONE [Suspect]
  4. SIMVASTATIN [Suspect]
  5. ZOLPIDEM [Suspect]

REACTIONS (3)
  - CARDIAC ARREST [None]
  - DRUG ABUSE [None]
  - RESPIRATORY ARREST [None]
